FAERS Safety Report 25081124 (Version 1)
Quarter: 2025Q1

REPORT INFORMATION
  Report Type: Spontaneous
  Country: US (occurrence: US)
  Receive Date: 20250315
  Receipt Date: 20250315
  Transmission Date: 20250409
  Serious: Yes (Other)
  Sender: ABBVIE
  Company Number: US-ABBVIE-6179175

PATIENT

DRUGS (1)
  1. ELUXADOLINE [Suspect]
     Active Substance: ELUXADOLINE
     Indication: Irritable bowel syndrome
     Route: 065

REACTIONS (1)
  - Biliary dyskinesia [Unknown]
